APPROVED DRUG PRODUCT: PREDNISOLONE ACETATE
Active Ingredient: PREDNISOLONE ACETATE
Strength: 50MG/ML
Dosage Form/Route: INJECTABLE;INJECTION
Application: A084492 | Product #001
Applicant: EPIC PHARMA LLC
Approved: Approved Prior to Jan 1, 1982 | RLD: No | RS: No | Type: DISCN